FAERS Safety Report 7178419-8 (Version None)
Quarter: 2010Q4

REPORT INFORMATION
  Report Type: 
  Country: None (occurrence: None)
  Receive Date: 20101220
  Receipt Date: 20101209
  Transmission Date: 20110411
  Serious: Yes (Hospitalization)
  Sender: FDA-Public Use
  Company Number: KR-ASTRAZENECA-2010SE56654

PATIENT
  Age: 46 Year
  Sex: Female

DRUGS (1)
  1. PROPOFOL [Suspect]
     Indication: SEDATIVE THERAPY
     Route: 042

REACTIONS (4)
  - ESCHERICHIA INFECTION [None]
  - MEDICATION ERROR [None]
  - PRODUCT CONTAMINATION MICROBIAL [None]
  - SEPTIC SHOCK [None]
